FAERS Safety Report 11527128 (Version 1)
Quarter: 2015Q3

REPORT INFORMATION
  Report Type: Spontaneous
  Country: US (occurrence: US)
  Receive Date: 20150903
  Receipt Date: 20150903
  Transmission Date: 20151125
  Serious: No
  Sender: FDA-Public Use
  Company Number: US-ELI_LILLY_AND_COMPANY-US200907006176

PATIENT
  Sex: Female

DRUGS (5)
  1. COZAAR [Concomitant]
     Active Substance: LOSARTAN POTASSIUM
  2. HUMALOG [Suspect]
     Active Substance: INSULIN LISPRO
  3. BABY ASPIRIN [Concomitant]
     Active Substance: ASPIRIN
  4. TOPROL XL [Concomitant]
     Active Substance: METOPROLOL SUCCINATE
     Indication: PROPHYLAXIS
  5. LANTUS [Concomitant]
     Active Substance: INSULIN GLARGINE

REACTIONS (6)
  - Intentional product use issue [Not Recovered/Not Resolved]
  - Heart rate increased [Not Recovered/Not Resolved]
  - Glycosylated haemoglobin increased [Not Recovered/Not Resolved]
  - Stress [Recovered/Resolved]
  - Hypoglycaemia [Recovered/Resolved]
  - Hypothyroidism [Not Recovered/Not Resolved]

NARRATIVE: CASE EVENT DATE: 2001
